FAERS Safety Report 6594283-X (Version None)
Quarter: 2010Q1

REPORT INFORMATION
  Report Type: 
  Country: None (occurrence: None)
  Receive Date: 20100222
  Receipt Date: 20100215
  Transmission Date: 20100710
  Serious: Yes (Hospitalization, Other)
  Sender: FDA-Public Use
  Company Number: JP-MERCK-1002USA00543

PATIENT
  Age: 26 Year
  Sex: Male

DRUGS (9)
  1. ISENTRESS [Suspect]
     Indication: HIV INFECTION
     Dosage: DAILY DOSAGE UNKNOWN
     Route: 048
     Dates: start: 20091112
  2. TRUVADA [Suspect]
     Indication: HIV INFECTION
     Route: 048
     Dates: start: 20091112
  3. CLARITH [Suspect]
     Indication: ATYPICAL MYCOBACTERIAL INFECTION
     Route: 048
     Dates: start: 20091215, end: 20100116
  4. ZITHROMAX [Suspect]
     Indication: ATYPICAL MYCOBACTERIAL INFECTION
     Route: 048
     Dates: start: 20100120
  5. MYCOBUTIN [Suspect]
     Indication: ATYPICAL MYCOBACTERIAL INFECTION
     Route: 048
     Dates: start: 20091225, end: 20100116
  6. MYCOBUTIN [Suspect]
     Route: 048
     Dates: start: 20100120, end: 20100202
  7. EBUTOL [Suspect]
     Indication: ATYPICAL MYCOBACTERIAL INFECTION
     Route: 048
     Dates: start: 20091225, end: 20100116
  8. EBUTOL [Suspect]
     Route: 048
     Dates: start: 20100120
  9. RIFAMPIN [Suspect]
     Route: 048

REACTIONS (3)
  - DRUG INTERACTION [None]
  - NEUTROPHIL COUNT DECREASED [None]
  - PANCYTOPENIA [None]
